FAERS Safety Report 16188595 (Version 8)
Quarter: 2024Q2

REPORT INFORMATION
  Report Type: Other
  Country: PL (occurrence: PL)
  Receive Date: 20190412
  Receipt Date: 20240601
  Transmission Date: 20240716
  Serious: Yes (Death, Life-Threatening, Hospitalization, Other)
  Sender: FDA-Public Use
  Company Number: PL-002147023-PHHY2019PL075121

PATIENT
  Age: 49 Year
  Sex: Male

DRUGS (27)
  1. DEXAMETHASONE [Suspect]
     Active Substance: DEXAMETHASONE
     Indication: Diffuse large B-cell lymphoma
     Route: 065
  2. METHOTREXATE [Suspect]
     Active Substance: METHOTREXATE
     Indication: Diffuse large B-cell lymphoma
     Dosage: 8 CYCLES, RCHOP THERAPY BETWEEN JANUARY AND JUNE 2013
     Route: 065
  3. METHOTREXATE [Suspect]
     Active Substance: METHOTREXATE
     Indication: Prophylaxis against graft versus host disease
  4. IFOSFAMIDE [Suspect]
     Active Substance: IFOSFAMIDE
     Indication: Diffuse large B-cell lymphoma stage IV
     Route: 065
  5. RITUXIMAB [Suspect]
     Active Substance: RITUXIMAB
     Indication: Diffuse large B-cell lymphoma
     Dosage: 8 CYCLES, RCHOP THERAPY BETWEEN JANUARY AND JUNE 2013; IMMUNOCHEMOTHERAPY
     Route: 042
     Dates: start: 201301, end: 201306
  6. RITUXIMAB [Suspect]
     Active Substance: RITUXIMAB
     Dosage: 8 CYCLES, RCHOP THERAPY BETWEEN JANUARY AND JUNE 2013; IMMUNOCHEMOTHERAPY
     Route: 042
  7. VINCRISTINE [Suspect]
     Active Substance: VINCRISTINE
     Indication: Diffuse large B-cell lymphoma
     Dosage: 8 CYCLES, RCHOP THERAPY BETWEEN JANUARY AND JUNE 2013
     Route: 065
  8. OFATUMUMAB [Suspect]
     Active Substance: OFATUMUMAB
     Indication: Diffuse large B-cell lymphoma stage IV
     Dosage: O-IVAC IMMUNOCHEMOTHERAPY
     Route: 065
  9. PREDNISONE [Suspect]
     Active Substance: PREDNISONE
     Indication: Diffuse large B-cell lymphoma
     Route: 065
     Dates: start: 201301, end: 201306
  10. PREDNISONE [Suspect]
     Active Substance: PREDNISONE
     Route: 065
  11. ETOPOSIDE [Suspect]
     Active Substance: ETOPOSIDE
     Indication: Diffuse large B-cell lymphoma
     Route: 065
  12. PREDNISOLONE [Suspect]
     Active Substance: PREDNISOLONE
     Indication: Diffuse large B-cell lymphoma
     Dosage: 8 CYCLES, RCHOP THERAPY BETWEEN JANUARY AND JUNE 2013
     Route: 065
  13. CYCLOPHOSPHAMIDE [Suspect]
     Active Substance: CYCLOPHOSPHAMIDE
     Indication: Diffuse large B-cell lymphoma
     Dosage: 8 CYCLES, RCHOP THERAPY BETWEEN JANUARY AND JUNE 2013
     Route: 065
  14. DOXORUBICIN [Suspect]
     Active Substance: DOXORUBICIN
     Indication: Diffuse large B-cell lymphoma
     Route: 065
  15. VINBLASTINE [Suspect]
     Active Substance: VINBLASTINE
     Indication: Diffuse large B-cell lymphoma
     Dosage: IMMUNOCHEMOTHERAPY-10MG/DAY
     Route: 065
  16. CYTARABINE [Suspect]
     Active Substance: CYTARABINE
     Indication: Diffuse large B-cell lymphoma stage IV
     Dosage: O-IVAC IMMUNOCHEMOTHERAPY
     Route: 065
  17. BENDAMUSTINE [Suspect]
     Active Substance: BENDAMUSTINE
     Indication: Diffuse large B-cell lymphoma
     Route: 065
     Dates: start: 201607
  18. BENDAMUSTINE [Suspect]
     Active Substance: BENDAMUSTINE
     Indication: Bone marrow conditioning regimen
     Route: 065
     Dates: start: 20140526
  19. CYCLOSPORINE [Suspect]
     Active Substance: CYCLOSPORINE
     Indication: Diffuse large B-cell lymphoma
     Route: 065
  20. CARBOPLATIN [Concomitant]
     Active Substance: CARBOPLATIN
     Indication: Diffuse large B-cell lymphoma
     Dosage: UNK
  21. MYCOPHENOLATE MOFETIL [Concomitant]
     Active Substance: MYCOPHENOLATE MOFETIL
     Indication: Acute motor-sensory axonal neuropathy
  22. BENDAMUSTINE [Concomitant]
     Active Substance: BENDAMUSTINE
     Dosage: CONDITIONING REGIMEN
  23. CYCLOSPORINE [Concomitant]
     Active Substance: CYCLOSPORINE
     Indication: Prophylaxis against graft versus host disease
     Dosage: UNK
  24. MELPHALAN [Concomitant]
     Active Substance: MELPHALAN
     Indication: Allogenic stem cell transplantation
     Dosage: UNK
  25. PIXANTRONE [Concomitant]
     Active Substance: PIXANTRONE
  26. DOXORUBICIN [Suspect]
     Active Substance: DOXORUBICIN
     Indication: Diffuse large B-cell lymphoma
     Dosage: 8 CYCLES, RCHOP THERAPY; IMMUNOCHEMOTHERAPY-100 MG/DAY
     Route: 065
  27. PLATINOL [Suspect]
     Active Substance: CISPLATIN
     Indication: Diffuse large B-cell lymphoma
     Route: 065

REACTIONS (13)
  - Disease progression [Unknown]
  - Pneumonia [Unknown]
  - Anaphylactic shock [Fatal]
  - Malignant neoplasm progression [Fatal]
  - Febrile neutropenia [Unknown]
  - Therapy partial responder [Unknown]
  - Septic shock [Fatal]
  - Diffuse large B-cell lymphoma [Fatal]
  - Acute polyneuropathy [Fatal]
  - Peripheral motor neuropathy [Fatal]
  - Peripheral sensory neuropathy [Fatal]
  - Myelosuppression [Unknown]
  - Infection [Unknown]
